FAERS Safety Report 18958972 (Version 1)
Quarter: 2021Q1

REPORT INFORMATION
  Report Type: Spontaneous
  Country: US (occurrence: US)
  Receive Date: 20210302
  Receipt Date: 20210302
  Transmission Date: 20210420
  Serious: No
  Sender: FDA-Public Use
  Company Number: US-ASTRAZENECA-2021A049168

PATIENT
  Sex: Male

DRUGS (1)
  1. CALQUENCE [Suspect]
     Active Substance: ACALABRUTINIB
     Indication: CHRONIC LEUKAEMIA
     Route: 048
     Dates: start: 2020

REACTIONS (6)
  - Erythema [Unknown]
  - Myalgia [Unknown]
  - Middle insomnia [Unknown]
  - Arthralgia [Unknown]
  - Insomnia [Unknown]
  - Peripheral swelling [Unknown]
